FAERS Safety Report 8023210-3 (Version None)
Quarter: 2012Q1

REPORT INFORMATION
  Report Type: 
  Country: None (occurrence: None)
  Receive Date: 20120104
  Receipt Date: 20111227
  Transmission Date: 20120608
  Serious: Yes (Hospitalization)
  Sender: FDA-Public Use
  Company Number: KR-ELI_LILLY_AND_COMPANY-KR201107004591

PATIENT
  Age: 71 Year
  Sex: Male

DRUGS (2)
  1. HUMALOG MIX 75/25 [Suspect]
     Dosage: 12 U, EACH EVENING
     Route: 058
     Dates: start: 20110301
  2. HUMALOG MIX 75/25 [Suspect]
     Indication: TYPE 2 DIABETES MELLITUS
     Dosage: 22 U, EACH MORNING
     Route: 058
     Dates: start: 20110301

REACTIONS (1)
  - PNEUMONIA [None]
